FAERS Safety Report 5899287-8 (Version None)
Quarter: 2008Q3

REPORT INFORMATION
  Report Type: 
  Country: None (occurrence: None)
  Receive Date: 20080925
  Receipt Date: 20080922
  Transmission Date: 20090109
  Serious: Yes (Hospitalization)
  Sender: FDA-Public Use
  Company Number: SG-MERCK-0809SGP00008

PATIENT
  Sex: Male

DRUGS (3)
  1. ZETIA [Suspect]
     Indication: HYPERCHOLESTEROLAEMIA
     Route: 048
     Dates: start: 20060101
  2. ASPIRIN [Concomitant]
     Route: 065
     Dates: start: 20050101
  3. ATENOLOL [Concomitant]
     Route: 065
     Dates: start: 20050101

REACTIONS (1)
  - COLORECTAL CANCER [None]
